FAERS Safety Report 15046452 (Version 1)
Quarter: 2018Q2

REPORT INFORMATION
  Report Type: Report from Study
  Country: US (occurrence: US)
  Receive Date: 20180621
  Receipt Date: 20180621
  Transmission Date: 20180711
  Serious: Yes (Hospitalization, Other)
  Sender: FDA-Public Use
  Company Number: US-ACTELION-A-NJ2018-167066

PATIENT
  Age: 90 Year
  Sex: Female
  Weight: 53.61 kg

DRUGS (2)
  1. TRACLEER [Suspect]
     Active Substance: BOSENTAN
     Indication: PULMONARY ARTERIAL HYPERTENSION
     Dosage: 125 MG, BID
     Route: 048
     Dates: start: 20110822
  2. TRADJENTA [Concomitant]
     Active Substance: LINAGLIPTIN

REACTIONS (12)
  - Haemoglobin decreased [Recovering/Resolving]
  - Blood glucose decreased [Not Recovered/Not Resolved]
  - Transfusion [Recovering/Resolving]
  - Toe amputation [Unknown]
  - Pneumonia [Unknown]
  - Decubitus ulcer [Recovering/Resolving]
  - Pulmonary hypertension [Recovering/Resolving]
  - Gangrene [Unknown]
  - Dyspnoea [Recovering/Resolving]
  - Respiratory failure [Recovering/Resolving]
  - Anaemia [Recovering/Resolving]
  - Chronic obstructive pulmonary disease [Recovering/Resolving]
